FAERS Safety Report 8987868 (Version 3)
Quarter: 2013Q1

REPORT INFORMATION
  Report Type: Spontaneous
  Country: US (occurrence: US)
  Receive Date: 20121227
  Receipt Date: 20130116
  Transmission Date: 20140127
  Serious: No
  Sender: FDA-Public Use
  Company Number: US-PFIZER INC-2012325151

PATIENT
  Age: 60 Year
  Sex: Male

DRUGS (2)
  1. INLYTA [Suspect]
     Indication: RENAL CANCER
     Dosage: 1 MG, 2X/DAY
     Route: 048
     Dates: start: 20121213
  2. INLYTA [Suspect]
     Dosage: 1 MG, 2X/DAY
     Route: 048
     Dates: start: 20130116

REACTIONS (9)
  - Hypertension [Unknown]
  - Weight decreased [Unknown]
  - Decreased appetite [Unknown]
  - Fatigue [Unknown]
  - Asthenia [Unknown]
  - Dysgeusia [Unknown]
  - Dysphonia [Unknown]
  - Constipation [Unknown]
  - Insomnia [Unknown]
